FAERS Safety Report 5808685-X (Version None)
Quarter: 2008Q3

REPORT INFORMATION
  Report Type: 
  Country: None (occurrence: None)
  Receive Date: 20080714
  Receipt Date: 20080708
  Transmission Date: 20090109
  Serious: Yes (Death)
  Sender: FDA-Public Use
  Company Number: GB-TEVA-173957ISR

PATIENT
  Age: 16 Week
  Sex: Female

DRUGS (5)
  1. METHOTREXATE [Suspect]
  2. ASPARAGINASE [Suspect]
     Indication: ACUTE LYMPHOCYTIC LEUKAEMIA
     Dosage: 6000 DF
  3. CYCLOPHOSPHAMIDE [Suspect]
     Indication: ACUTE LYMPHOCYTIC LEUKAEMIA
  4. CYTARABINE [Suspect]
     Indication: ACUTE LYMPHOCYTIC LEUKAEMIA
  5. DEXAMETHASONE [Suspect]
     Indication: ACUTE LYMPHOCYTIC LEUKAEMIA
     Route: 048

REACTIONS (4)
  - ADENOVIRAL HEPATITIS [None]
  - ENTEROCOLITIS HAEMORRHAGIC [None]
  - GASTRITIS [None]
  - SUBARACHNOID HAEMORRHAGE [None]
